FAERS Safety Report 9034385 (Version 1)
Quarter: 2013Q1

REPORT INFORMATION
  Report Type: Spontaneous
  Country: US (occurrence: None)
  Receive Date: 20130116
  Receipt Date: 20130116
  Transmission Date: 20140127
  Serious: Yes (Hospitalization)
  Sender: FDA-Public Use
  Company Number: None

PATIENT
  Age: 72 Year
  Sex: Female
  Weight: 89.5 kg

DRUGS (6)
  1. YERVOY [Suspect]
     Indication: METASTATIC MALIGNANT MELANOMA
     Dosage: 3MG/KG  Q3WEEKS X4  IV
     Route: 042
     Dates: start: 20120919, end: 20121221
  2. SYLATRON [Suspect]
     Indication: METASTATIC MALIGNANT MELANOMA
     Dosage: 2MCG/KG  Q3WEEKS  SQ
     Route: 058
     Dates: start: 20120919, end: 20121221
  3. NEXIUM [Concomitant]
  4. VITAMIN B 12 [Concomitant]
  5. ONDANSETRON [Concomitant]
  6. ATARAX [Concomitant]

REACTIONS (1)
  - Cellulitis [None]
